FAERS Safety Report 4516549-7 (Version None)
Quarter: 2004Q4

REPORT INFORMATION
  Report Type: 
  Country: None (occurrence: None)
  Receive Date: 20041029
  Receipt Date: 20040714
  Transmission Date: 20050328
  Serious: No
  Sender: FDA-Public Use
  Company Number: 2004-118495-NL

PATIENT
  Age: 30 Year
  Sex: Female
  Weight: 56.7 kg

DRUGS (2)
  1. NUVARING [Suspect]
     Indication: MENSTRUATION IRREGULAR
     Dosage: DF DAILY VAGINAL
     Route: 067
     Dates: start: 20040613
  2. FLINTSTONES MULTIPLE VITAMINS [Concomitant]

REACTIONS (3)
  - CRYING [None]
  - INSOMNIA [None]
  - MIGRAINE [None]
